FAERS Safety Report 15279603 (Version 1)
Quarter: 2018Q3

REPORT INFORMATION
  Report Type: Spontaneous
  Country: US (occurrence: US)
  Receive Date: 20180815
  Receipt Date: 20180815
  Transmission Date: 20181010
  Serious: No
  Sender: FDA-Public Use
  Company Number: US-PFIZER INC-2018325781

PATIENT

DRUGS (1)
  1. ADVIL MIGRAINE [Suspect]
     Active Substance: IBUPROFEN
     Indication: TOOTHACHE

REACTIONS (4)
  - Oral discomfort [Unknown]
  - Product taste abnormal [Unknown]
  - Dysgeusia [Unknown]
  - Intentional product misuse [Unknown]
